FAERS Safety Report 13537641 (Version 2)
Quarter: 2017Q2

REPORT INFORMATION
  Report Type: Spontaneous
  Country: ES (occurrence: ES)
  Receive Date: 20170511
  Receipt Date: 20170518
  Transmission Date: 20170830
  Serious: Yes (Other)
  Sender: FDA-Public Use
  Company Number: ES-ALLERGAN-1718418US

PATIENT
  Age: 73 Year
  Sex: Female

DRUGS (1)
  1. CONSTELLA [Suspect]
     Active Substance: LINACLOTIDE
     Indication: CONSTIPATION
     Dosage: 290 ?G, QHS
     Route: 048
     Dates: start: 20170428

REACTIONS (3)
  - Rectal haemorrhage [Recovered/Resolved]
  - Faeces hard [Recovered/Resolved]
  - Muscle spasms [Recovered/Resolved]
